FAERS Safety Report 6768678-5 (Version None)
Quarter: 2010Q2

REPORT INFORMATION
  Report Type: 
  Country: None (occurrence: None)
  Receive Date: 20100614
  Receipt Date: 20100604
  Transmission Date: 20101027
  Serious: Yes (Disabling)
  Sender: FDA-Public Use
  Company Number: US-WATSON-2009-09020

PATIENT

DRUGS (19)
  1. TEMAZEPAM [Suspect]
     Indication: INSOMNIA
     Dosage: 30 MG, QHS PRN SLEEP/ONCE DAILY
     Route: 048
     Dates: start: 20040303, end: 20040817
  2. TEMAZEPAM [Suspect]
     Indication: ANXIETY
  3. TRAZODONE HYDROCHLORIDE [Suspect]
     Indication: INSOMNIA
     Dosage: 150 MG QPM PRN/ONCE DAILY
     Route: 048
     Dates: start: 20040301, end: 20040401
  4. TRAZODONE HYDROCHLORIDE [Suspect]
     Dosage: UNK
  5. TEMAZEPAM [Suspect]
     Indication: INSOMNIA
     Dosage: 30 MG, QHS PRN SLEEP
     Dates: start: 20040315
  6. TEMAZEPAM [Suspect]
     Indication: ANXIETY
     Dosage: 15 MG, QHS
     Dates: start: 20040324
  7. TEMAZEPAM [Suspect]
     Dosage: 30 MG, QHS PRN SLEEP
     Dates: start: 20040303
  8. TEMAZEPAM [Suspect]
     Dosage: 15 MG, QHS PRN SLEEP
     Dates: start: 20040709
  9. TEMAZEPAM [Suspect]
     Dosage: 15 MG, QHS PRN SLEEP
     Dates: start: 20040817
  10. TRAZODONE HYDROCHLORIDE [Suspect]
     Indication: INSOMNIA
     Dosage: 150 MG, PO QHS
     Dates: start: 20040318
  11. TRAZODONE HYDROCHLORIDE [Suspect]
     Dosage: 50 MG TO 100 MG QHS PRN
     Dates: start: 20040226
  12. AMBIEN [Concomitant]
     Indication: INSOMNIA
     Dosage: ONCE A DAY
     Dates: start: 20040212, end: 20040301
  13. AMBIEN [Concomitant]
     Dosage: 10 MG, QHS PRN SLEEP
     Dates: start: 20040212
  14. AMBIEN [Concomitant]
     Dosage: 10 MG, QHS PRN
     Dates: start: 20040301
  15. LEXAPRO [Concomitant]
     Indication: DRUG USE FOR UNKNOWN INDICATION
     Dosage: 10 MG, DAILY
     Dates: start: 20040709
  16. LEXAPRO [Concomitant]
     Dosage: 20 MG, DAILY
     Dates: start: 20040726
  17. NAPROXEN [Concomitant]
     Indication: DRUG USE FOR UNKNOWN INDICATION
     Dosage: 500 MG, BID WITH FOOD
     Dates: start: 20041120
  18. HYDROCODONE BITARTRATE AND ACETAMINOPHEN [Concomitant]
     Indication: DRUG USE FOR UNKNOWN INDICATION
     Dosage: 1-2T Q4HRS PRN PAIN
     Dates: start: 20041121
  19. CELEXA [Concomitant]
     Indication: DRUG USE FOR UNKNOWN INDICATION
     Dosage: 20 MG, UNKNOWN
     Route: 065
     Dates: start: 20040730

REACTIONS (9)
  - AMNESIA [None]
  - ANXIETY [None]
  - DRUG INEFFECTIVE [None]
  - ERECTILE DYSFUNCTION [None]
  - IMPRISONMENT [None]
  - MEMORY IMPAIRMENT [None]
  - PALPITATIONS [None]
  - SEXUAL ABUSE [None]
  - TACHYCARDIA [None]
